FAERS Safety Report 16162293 (Version 1)
Quarter: 2019Q2

REPORT INFORMATION
  Report Type: Spontaneous
  Country: US (occurrence: US)
  Receive Date: 20190405
  Receipt Date: 20190405
  Transmission Date: 20190711
  Serious: No
  Sender: FDA-Public Use
  Company Number: US-TEVA-2019-US-1025701

PATIENT
  Age: 10 Year
  Sex: Female

DRUGS (1)
  1. METHYLPHENIDATE ER ACTAVIS [Suspect]
     Active Substance: METHYLPHENIDATE

REACTIONS (9)
  - Dizziness [Unknown]
  - Abdominal pain upper [Unknown]
  - Weight increased [Unknown]
  - Feeling abnormal [Unknown]
  - Depressed mood [Unknown]
  - Product substitution issue [Unknown]
  - Headache [Unknown]
  - Lethargy [Unknown]
  - Depression [Unknown]
